FAERS Safety Report 24285145 (Version 1)
Quarter: 2024Q3

REPORT INFORMATION
  Report Type: Spontaneous
  Country: GB (occurrence: GB)
  Receive Date: 20240905
  Receipt Date: 20240905
  Transmission Date: 20241016
  Serious: Yes (Other)
  Sender: ALKEM
  Company Number: None

PATIENT
  Age: 81 Year
  Sex: Female
  Weight: 103 kg

DRUGS (18)
  1. PREGABALIN [Suspect]
     Active Substance: PREGABALIN
     Indication: Product used for unknown indication
     Dosage: 100 MILLIGRAM (CAPSULE)
     Route: 065
  2. ATORVASTATIN [Concomitant]
     Active Substance: ATORVASTATIN
     Indication: Product used for unknown indication
     Dosage: 1 DOSAGE FORM, HS (NIGHT)
     Route: 065
     Dates: start: 20220901
  3. CAPSAICIN [Concomitant]
     Active Substance: CAPSAICIN
     Indication: Product used for unknown indication
     Dosage: UNK (APPLY SPARINGLY THREE TO FOUR TIMES TO AF)
     Route: 065
     Dates: start: 20230316
  4. DOXAZOSIN [Concomitant]
     Active Substance: DOXAZOSIN MESYLATE
     Indication: Product used for unknown indication
     Dosage: 2 DOSAGE FORM
     Route: 065
     Dates: start: 20221207
  5. FLUCLOXACILLIN [Concomitant]
     Active Substance: FLUCLOXACILLIN
     Indication: Product used for unknown indication
     Dosage: 4 DOSAGE FORM, QD
     Route: 065
     Dates: start: 20230914, end: 20230921
  6. FUROSEMIDE [Concomitant]
     Active Substance: FUROSEMIDE
     Indication: Product used for unknown indication
     Dosage: 160 MILLIGRAM, BID (AT 8AM AND 12PM)
     Route: 065
     Dates: start: 20190625
  7. BIMATOPROST\TIMOLOL [Concomitant]
     Active Substance: BIMATOPROST\TIMOLOL
     Indication: Product used for unknown indication
     Dosage: 1 DROP, QD (LEFT EYE)
     Route: 031
     Dates: start: 20190107
  8. HYDRALAZINE [Concomitant]
     Active Substance: HYDRALAZINE HYDROCHLORIDE
     Indication: Product used for unknown indication
     Dosage: 2 DOSAGE FORM, QD
     Route: 065
     Dates: start: 20191125
  9. HYPROMELLOSES [Concomitant]
     Active Substance: HYPROMELLOSES
     Indication: Product used for unknown indication
     Dosage: 1 DROP, PRN (INSTIL DROP)
     Route: 031
     Dates: start: 20220815
  10. LANTUS [Concomitant]
     Active Substance: INSULIN GLARGINE
     Indication: Product used for unknown indication
     Dosage: UNK (48 UNITS TO BE TAKEN EACH MORNING AND 36 UNITS)
     Route: 065
     Dates: start: 20230804
  11. POLYETHYLENE GLYCOL 3350\POTASSIUM CHLORIDE\SODIUM BICARBONATE\SODIUM [Concomitant]
     Active Substance: POLYETHYLENE GLYCOL 3350\POTASSIUM CHLORIDE\SODIUM BICARBONATE\SODIUM CHLORIDE
     Indication: Product used for unknown indication
     Dosage: UNK, PRN (ONE OR TWO WHEN REQUIRED))
     Route: 065
     Dates: start: 20171120
  12. LERCANIDIPINE HYDROCHLORIDE [Concomitant]
     Active Substance: LERCANIDIPINE HYDROCHLORIDE
     Indication: Product used for unknown indication
     Dosage: 1 DOSAGE FORM, QD
     Route: 065
     Dates: start: 20171120
  13. TRAMADOL HYDROCHLORIDE [Concomitant]
     Active Substance: TRAMADOL HYDROCHLORIDE
     Indication: Product used for unknown indication
     Dosage: 2 DOSAGE FORM, QD
     Route: 065
     Dates: start: 20190603
  14. OMEPRAZOLE [Concomitant]
     Active Substance: OMEPRAZOLE
     Indication: Product used for unknown indication
     Dosage: 1 DOSAGE FORM, QD
     Route: 065
     Dates: start: 20171120
  15. ACETAMINOPHEN [Concomitant]
     Active Substance: ACETAMINOPHEN
     Indication: Product used for unknown indication
     Dosage: 8 DOSAGE FORM, QD
     Route: 065
     Dates: start: 20171120
  16. PIROXICAM [Concomitant]
     Active Substance: PIROXICAM
     Indication: Product used for unknown indication
     Dosage: UNK (APPLY AS DIRECTED)
     Route: 065
     Dates: start: 20190603
  17. SENNA [Concomitant]
     Active Substance: SENNA LEAF\SENNOSIDES\SENNOSIDES A AND B
     Indication: Product used for unknown indication
     Dosage: 2 DOSAGE FORM, HS
     Route: 065
     Dates: start: 20220510
  18. SEVODYNE [Concomitant]
     Indication: Product used for unknown indication
     Dosage: 1 DOSAGE FORM (APPLY PATCH TO NON-IRRITATED, NON-HAIRY, DR)
     Route: 065
     Dates: start: 20221004

REACTIONS (1)
  - Confusional state [Recovered/Resolved]
